FAERS Safety Report 12825791 (Version 2)
Quarter: 2016Q4

REPORT INFORMATION
  Report Type: Spontaneous
  Country: GR (occurrence: GR)
  Receive Date: 20161007
  Receipt Date: 20161017
  Transmission Date: 20170207
  Serious: Yes (Life-Threatening, Hospitalization)
  Sender: FDA-Public Use
  Company Number: GR-ABBVIE-16P-066-1747751-00

PATIENT
  Age: 40 Year
  Sex: Male

DRUGS (2)
  1. DEPAKINE [Suspect]
     Active Substance: VALPROATE SODIUM
     Indication: OVERDOSE
     Route: 048
  2. AKINETON [Concomitant]
     Active Substance: BIPERIDEN HYDROCHLORIDE
     Indication: PRODUCT USED FOR UNKNOWN INDICATION

REACTIONS (7)
  - Pyrexia [Unknown]
  - Overdose [Unknown]
  - Agitation [Unknown]
  - Aspiration [Unknown]
  - Lower respiratory tract infection [Unknown]
  - Coma scale abnormal [Unknown]
  - Toxicity to various agents [Unknown]
